FAERS Safety Report 6664170-7 (Version None)
Quarter: 2010Q2

REPORT INFORMATION
  Report Type: 
  Country: None (occurrence: None)
  Receive Date: 20100401
  Receipt Date: 20100324
  Transmission Date: 20101027
  Serious: Yes (Other)
  Sender: FDA-Public Use
  Company Number: US-JNJCH-2010007645

PATIENT
  Sex: Female

DRUGS (1)
  1. ROLAIDS [Suspect]
     Indication: DYSPEPSIA
     Dosage: TEXT:2 A DAY
     Route: 048
     Dates: start: 20100101, end: 20100324

REACTIONS (2)
  - IMPAIRED WORK ABILITY [None]
  - MALAISE [None]
